FAERS Safety Report 14841171 (Version 1)
Quarter: 2018Q2

REPORT INFORMATION
  Report Type: Spontaneous
  Country: US (occurrence: US)
  Receive Date: 20180503
  Receipt Date: 20180503
  Transmission Date: 20180711
  Serious: No
  Sender: FDA-Public Use
  Company Number: US-AMERIGEN PHARMACEUTICALS, INC-2018AMG000004

PATIENT
  Sex: Female

DRUGS (8)
  1. TEMOZOLOMIDE. [Suspect]
     Active Substance: TEMOZOLOMIDE
     Indication: ADJUVANT THERAPY
     Dosage: 5 DF, UNK,EVERY 23 DAYS
     Route: 048
     Dates: start: 201705
  2. CLONAZEPAM. [Concomitant]
     Active Substance: CLONAZEPAM
     Dosage: 0.5 MG,AT EVENING
     Route: 048
  3. LACOSAMIDE. [Concomitant]
     Active Substance: LACOSAMIDE
     Indication: SEIZURE
     Dosage: 200 MG, BID
     Route: 048
  4. EMEND [Concomitant]
     Active Substance: APREPITANT
     Indication: NAUSEA
     Dosage: 125 MG, TID, 1ST DAY
     Route: 048
  5. EMEND [Concomitant]
     Active Substance: APREPITANT
     Dosage: 80 MG, TID, (2ND AND 3RD DAY)
     Route: 048
  6. LEVETIRACETAM. [Concomitant]
     Active Substance: LEVETIRACETAM
     Indication: SEIZURE
     Dosage: 1000 MG, TID
     Route: 048
  7. ONDANSETRON [Concomitant]
     Active Substance: ONDANSETRON
     Indication: NAUSEA
     Dosage: 8 MG, TID, AS NEEDED
     Route: 065
  8. CLONAZEPAM. [Concomitant]
     Active Substance: CLONAZEPAM
     Indication: SEIZURE
     Dosage: 0.25 MG, MORNING AND AFTERNOON
     Route: 048

REACTIONS (2)
  - Drug administration error [Unknown]
  - Product quality issue [Unknown]
